FAERS Safety Report 9143049 (Version 1)
Quarter: 2013Q1

REPORT INFORMATION
  Report Type: Spontaneous
  Country: US (occurrence: US)
  Receive Date: 20130306
  Receipt Date: 20130306
  Transmission Date: 20140127
  Serious: No
  Sender: FDA-Public Use
  Company Number: US-PFIZER INC-2013032669

PATIENT
  Age: 70 Year
  Sex: Female

DRUGS (2)
  1. INLYTA [Suspect]
     Indication: BREAST CANCER
     Dosage: 3 MG, 2X/DAY
     Dates: start: 20120730
  2. INLYTA [Suspect]
     Indication: RENAL CANCER

REACTIONS (1)
  - Stomatitis [Unknown]
